FAERS Safety Report 11204344 (Version 2)
Quarter: 2015Q3

REPORT INFORMATION
  Report Type: Spontaneous
  Country: US (occurrence: US)
  Receive Date: 20150620
  Receipt Date: 20150903
  Transmission Date: 20151125
  Serious: Yes (Congenital Anomaly, Other)
  Sender: FDA-Public Use
  Company Number: US-APOTEX-2015AP008627

PATIENT
  Sex: Female

DRUGS (1)
  1. PAXIL [Suspect]
     Active Substance: PAROXETINE HYDROCHLORIDE
     Indication: PRODUCT USED FOR UNKNOWN INDICATION
     Dosage: UNK
     Route: 064

REACTIONS (8)
  - Foetal exposure during pregnancy [Unknown]
  - Spina bifida [Unknown]
  - Genitalia external ambiguous [Unknown]
  - Single functional kidney [Unknown]
  - Caudal regression syndrome [Unknown]
  - Lipomeningocele [Unknown]
  - Persistent urogenital sinus [Unknown]
  - Vaginal atresia [Unknown]
